FAERS Safety Report 13686479 (Version 1)
Quarter: 2017Q2

REPORT INFORMATION
  Report Type: Spontaneous
  Country: US (occurrence: US)
  Receive Date: 20170623
  Receipt Date: 20170623
  Transmission Date: 20170830
  Serious: No
  Sender: FDA-Public Use
  Company Number: US-ROCHE-1100305

PATIENT
  Sex: Female
  Weight: 43.58 kg

DRUGS (2)
  1. CELLCEPT [Suspect]
     Active Substance: MYCOPHENOLATE MOFETIL\MYCOPHENOLATE MOFETIL HYDROCHLORIDE
     Indication: TRANSPLANT
     Dosage: EXPOSURE PREPREGNANCY-1ST TRIMESTER
     Route: 048
     Dates: end: 20111111
  2. TACROLIMUS. [Concomitant]
     Active Substance: TACROLIMUS
     Indication: TRANSPLANT
     Dosage: EXPOSURE PREPREGNANCY-3RD TRIMESTER
     Route: 048

REACTIONS (1)
  - Pregnancy [Unknown]
